FAERS Safety Report 13000327 (Version 1)
Quarter: 2016Q4

REPORT INFORMATION
  Report Type: Spontaneous
  Country: GB (occurrence: GB)
  Receive Date: 20161206
  Receipt Date: 20161206
  Transmission Date: 20170207
  Serious: Yes (Life-Threatening, Hospitalization)
  Sender: FDA-Public Use
  Company Number: GB-ABBVIE-16K-167-1799130-00

PATIENT
  Age: 51 Year
  Sex: Male

DRUGS (3)
  1. HUMIRA [Suspect]
     Active Substance: ADALIMUMAB
     Indication: PSORIASIS
     Route: 058
     Dates: start: 20130307, end: 201610
  2. PHENOXYMETHYLPENICILLIN [Interacting]
     Active Substance: PENICILLIN V
     Indication: PHARYNGITIS
     Route: 048
  3. INFLUENZA VIRUS [Interacting]
     Active Substance: INFLUENZA VIRUS VACCINE
     Indication: ANTIVIRAL PROPHYLAXIS
     Route: 058

REACTIONS (10)
  - Mouth swelling [Recovering/Resolving]
  - Dry skin [Recovering/Resolving]
  - Erythrodermic psoriasis [Recovering/Resolving]
  - Body temperature abnormal [Unknown]
  - Hypophagia [Unknown]
  - Drug interaction [Recovering/Resolving]
  - Chills [Unknown]
  - Skin exfoliation [Recovering/Resolving]
  - Angioedema [Recovering/Resolving]
  - Pharyngitis [Unknown]

NARRATIVE: CASE EVENT DATE: 201610
